FAERS Safety Report 22265162 (Version 1)
Quarter: 2023Q2

REPORT INFORMATION
  Report Type: Spontaneous
  Country: US (occurrence: None)
  Receive Date: 20230426
  Receipt Date: 20230426
  Transmission Date: 20230722
  Serious: No
  Sender: FDA-Public Use
  Company Number: None

PATIENT
  Age: 78 Year
  Sex: Female
  Weight: 84.37 kg

DRUGS (22)
  1. IMATINIB MESYLATE [Suspect]
     Active Substance: IMATINIB MESYLATE
     Indication: Chronic myeloid leukaemia
     Dosage: FREQUENCY : DAILY;?
     Route: 048
  2. ALBUTEROL SULFATE [Concomitant]
     Active Substance: ALBUTEROL SULFATE
  3. ASPIRIN [Concomitant]
     Active Substance: ASPIRIN
  4. ATORVASTATIN CALCIUM [Concomitant]
  5. BACLOFEN [Concomitant]
  6. CETIRIZINE HYDROCHLORIDE [Concomitant]
     Active Substance: CETIRIZINE HYDROCHLORIDE
  7. DIAZEPAM [Concomitant]
  8. FELODIPINE [Concomitant]
  9. HYDROXYZINE HYDROCHLORIDE [Concomitant]
     Active Substance: HYDROXYZINE HYDROCHLORIDE
  10. IMODIUM A-D [Concomitant]
  11. LEVOFLOXACIN [Concomitant]
  12. LORAZEPAM [Concomitant]
  13. LOSARTAN POTASSIUM [Concomitant]
  14. METFORMIN HYDROCHLORIDE [Concomitant]
     Active Substance: METFORMIN HYDROCHLORIDE
  15. METHOCARBAMOL [Concomitant]
  16. MONTELUKAST SODIUM [Concomitant]
  17. MUCINEX DM [Concomitant]
     Active Substance: DEXTROMETHORPHAN HYDROBROMIDE\GUAIFENESIN
  18. NITROGLYCERIN [Concomitant]
  19. ONDANSETRON [Concomitant]
  20. PREDNISONE [Concomitant]
  21. PROCHLORPERAZINE [Concomitant]
  22. Sertraline HCI [Concomitant]

REACTIONS (3)
  - Localised infection [None]
  - Fatigue [None]
  - Feeling cold [None]
